FAERS Safety Report 13993832 (Version 4)
Quarter: 2018Q2

REPORT INFORMATION
  Report Type: Spontaneous
  Country: US (occurrence: US)
  Receive Date: 20170920
  Receipt Date: 20180601
  Transmission Date: 20180711
  Serious: No
  Sender: FDA-Public Use
  Company Number: US-BAYER-2017-179344

PATIENT
  Age: 50 Year
  Sex: Male

DRUGS (2)
  1. BETASERON [Suspect]
     Active Substance: INTERFERON BETA-1B
     Indication: MULTIPLE SCLEROSIS
     Dosage: 8 MIU, QOD
     Route: 058
     Dates: start: 20101018
  2. BETACONNECT [Suspect]
     Active Substance: DEVICE
     Dosage: UNK

REACTIONS (10)
  - Influenza like illness [Recovered/Resolved]
  - Fear of injection [Not Recovered/Not Resolved]
  - Device ineffective [Unknown]
  - Wrong technique in product usage process [Not Recovered/Not Resolved]
  - Injection site mass [Recovered/Resolved]
  - Drug dose omission [Recovered/Resolved]
  - Injection site pain [Not Recovered/Not Resolved]
  - Underdose [Unknown]
  - Device malfunction [None]
  - Injection site rash [Not Recovered/Not Resolved]

NARRATIVE: CASE EVENT DATE: 20170926
